FAERS Safety Report 6314652-2 (Version None)
Quarter: 2009Q3

REPORT INFORMATION
  Report Type: 
  Country: None (occurrence: None)
  Receive Date: 20090819
  Receipt Date: 20090811
  Transmission Date: 20100115
  Serious: Yes (Other)
  Sender: FDA-Public Use
  Company Number: ES-AVENTIS-200917537GDDC

PATIENT
  Sex: Male

DRUGS (2)
  1. ARAVA [Suspect]
     Indication: RHEUMATOID ARTHRITIS
     Dosage: DOSE: UNK
     Dates: start: 20081101, end: 20090301
  2. DECORTIN [Concomitant]
     Indication: RHEUMATOID ARTHRITIS
     Dosage: DOSE: UNK

REACTIONS (2)
  - BONE MARROW FAILURE [None]
  - THROMBOCYTOPENIA [None]
